FAERS Safety Report 17332235 (Version 1)
Quarter: 2020Q1

REPORT INFORMATION
  Report Type: Spontaneous
  Country: DE (occurrence: DE)
  Receive Date: 20200127
  Receipt Date: 20200127
  Transmission Date: 20200409
  Serious: Yes (Hospitalization, Other)
  Sender: FDA-Public Use
  Company Number: DE-DSJP-DSE-2020-102109

PATIENT

DRUGS (1)
  1. LIXIANA [Suspect]
     Active Substance: EDOXABAN TOSYLATE
     Indication: PRODUCT USED FOR UNKNOWN INDICATION
     Dosage: 60 MG, ONCE EVERY 12HR
     Route: 048
     Dates: start: 20191213, end: 20191215

REACTIONS (6)
  - Toxicity to various agents [Recovering/Resolving]
  - Haemorrhage [Recovering/Resolving]
  - Overdose [Recovered/Resolved]
  - Swelling face [Recovering/Resolving]
  - Inappropriate schedule of product administration [Recovered/Resolved]
  - Dose calculation error [Recovering/Resolving]

NARRATIVE: CASE EVENT DATE: 20191213
